FAERS Safety Report 5744033-1 (Version None)
Quarter: 2008Q2

REPORT INFORMATION
  Report Type: 
  Country: None (occurrence: None)
  Receive Date: 20080516
  Receipt Date: 20080516
  Transmission Date: 20081010
  Serious: Yes (Other)
  Sender: FDA-Public Use
  Company Number: None

PATIENT
  Age: 39 Year
  Sex: Female
  Weight: 43.0917 kg

DRUGS (1)
  1. DIFLUCAN [Suspect]
     Indication: COCCIDIOIDOMYCOSIS

REACTIONS (2)
  - RASH [None]
  - STOMATITIS [None]
